FAERS Safety Report 24626646 (Version 2)
Quarter: 2025Q3

REPORT INFORMATION
  Report Type: Report from Study
  Country: US (occurrence: US)
  Receive Date: 20241115
  Receipt Date: 20250810
  Transmission Date: 20251020
  Serious: Yes (Other)
  Sender: ALEXION PHARMACEUTICALS
  Company Number: US-ALXN-202411USA005331US

PATIENT

DRUGS (1)
  1. STRENSIQ [Suspect]
     Active Substance: ASFOTASE ALFA
     Route: 065

REACTIONS (22)
  - Swollen tongue [Unknown]
  - Musculoskeletal chest pain [Unknown]
  - Back pain [Unknown]
  - Abdominal distension [Unknown]
  - Facial discomfort [Unknown]
  - Swelling face [Unknown]
  - Joint stiffness [Unknown]
  - Arthralgia [Unknown]
  - Headache [Unknown]
  - Pain [Unknown]
  - Blood glucose increased [Unknown]
  - Osteopenia [Unknown]
  - Rib fracture [Unknown]
  - Body height decreased [Unknown]
  - Tooth discolouration [Unknown]
  - Heart rate irregular [Unknown]
  - Cardiac murmur [Unknown]
  - Abdominal tenderness [Unknown]
  - Scoliosis [Unknown]
  - Chest pain [Unknown]
  - Joint hyperextension [Unknown]
  - Elbow deformity [Unknown]
